FAERS Safety Report 6765377-0 (Version None)
Quarter: 2010Q2

REPORT INFORMATION
  Report Type: 
  Country: None (occurrence: None)
  Receive Date: 20100611
  Receipt Date: 20100604
  Transmission Date: 20101027
  Serious: Yes (Other)
  Sender: FDA-Public Use
  Company Number: US-JNJFOC-20100108217

PATIENT
  Sex: Female

DRUGS (4)
  1. LEVAQUIN [Suspect]
     Indication: NASOPHARYNGITIS
     Route: 048
  2. LEVAQUIN [Suspect]
     Indication: INFLUENZA LIKE ILLNESS
     Route: 048
  3. LEVAQUIN [Suspect]
     Indication: BRONCHITIS
     Route: 048
  4. PREDNISONE [Suspect]
     Indication: INFLAMMATION
     Route: 065

REACTIONS (4)
  - MYOPATHY [None]
  - TENDON DISORDER [None]
  - TENDON PAIN [None]
  - TENDON RUPTURE [None]
